FAERS Safety Report 12132227 (Version 1)
Quarter: 2016Q1

REPORT INFORMATION
  Report Type: Spontaneous
  Country: JO (occurrence: JO)
  Receive Date: 20160301
  Receipt Date: 20160301
  Transmission Date: 20160526
  Serious: Yes (Hospitalization)
  Sender: FDA-Public Use
  Company Number: JO-HOSPIRA-3181592

PATIENT
  Age: 54 Year
  Sex: Female

DRUGS (3)
  1. DOCETAXEL. [Suspect]
     Active Substance: DOCETAXEL
     Indication: BREAST CANCER RECURRENT
     Dates: start: 2012
  2. CYCLOPHOSPHAMIDE. [Suspect]
     Active Substance: CYCLOPHOSPHAMIDE
     Indication: BREAST CANCER RECURRENT
     Dates: start: 2012
  3. DOXORUBICIN [Suspect]
     Active Substance: DOXORUBICIN
     Indication: BREAST CANCER RECURRENT
     Dates: start: 2012

REACTIONS (3)
  - Neutropenia [Unknown]
  - Staphylococcal infection [Recovered/Resolved]
  - Psoas abscess [Unknown]

NARRATIVE: CASE EVENT DATE: 2012
